FAERS Safety Report 7932672-9 (Version None)
Quarter: 2011Q4

REPORT INFORMATION
  Report Type: 
  Country: None (occurrence: None)
  Receive Date: 20111122
  Receipt Date: 20111114
  Transmission Date: 20120403
  Serious: Yes (Other)
  Sender: FDA-Public Use
  Company Number: US-JNJFOC-20111003490

PATIENT
  Sex: Female
  Weight: 73.48 kg

DRUGS (3)
  1. REMICADE [Suspect]
     Indication: CROHN'S DISEASE
     Route: 042
     Dates: start: 20110907, end: 20110907
  2. REMICADE [Suspect]
     Dosage: ON THERAPY FOR A FEW YEARS
     Route: 042
     Dates: start: 20091001
  3. LIALDA [Concomitant]
     Indication: CROHN'S DISEASE
     Route: 065
     Dates: start: 20100601

REACTIONS (2)
  - SERUM SICKNESS [None]
  - LUPUS-LIKE SYNDROME [None]
